FAERS Safety Report 6839471-X (Version None)
Quarter: 2010Q3

REPORT INFORMATION
  Report Type: 
  Country: None (occurrence: None)
  Receive Date: 20100714
  Receipt Date: 20090728
  Transmission Date: 20110219
  Serious: No
  Sender: FDA-Public Use
  Company Number: A0799102A

PATIENT
  Age: 81 Year
  Sex: Female

DRUGS (3)
  1. FLOVENT [Suspect]
     Indication: COUGH
     Dosage: 2PUFF TWICE PER DAY
     Route: 055
     Dates: start: 20090716
  2. ZEGERID [Concomitant]
  3. NORVASC [Concomitant]

REACTIONS (1)
  - COUGH [None]
